FAERS Safety Report 8005685-9 (Version None)
Quarter: 2011Q4

REPORT INFORMATION
  Report Type: 
  Country: None (occurrence: None)
  Receive Date: 20111223
  Receipt Date: 20111212
  Transmission Date: 20120403
  Serious: Yes (Hospitalization)
  Sender: FDA-Public Use
  Company Number: ES-CELGENEUS-144-50794-11121466

PATIENT
  Age: 56 Year
  Sex: Female

DRUGS (2)
  1. VIDAZA [Suspect]
     Dosage: 37.5 MILLIGRAM
     Route: 065
     Dates: start: 20110721, end: 20111109
  2. ANTIBIOTICS [Concomitant]
     Route: 065
     Dates: start: 20110901, end: 20110901

REACTIONS (5)
  - VOMITING [None]
  - TOXICITY TO VARIOUS AGENTS [None]
  - PNEUMONIA [None]
  - NAUSEA [None]
  - DIZZINESS [None]
